FAERS Safety Report 8364471-0 (Version None)
Quarter: 2012Q2

REPORT INFORMATION
  Report Type: 
  Country: None (occurrence: None)
  Receive Date: 20120516
  Receipt Date: 20120509
  Transmission Date: 20120825
  Serious: Yes (Other)
  Sender: FDA-Public Use
  Company Number: US-GLAXOSMITHKLINE-A0976972A

PATIENT
  Age: 62 Year
  Sex: Male

DRUGS (20)
  1. NEURONTIN [Concomitant]
     Dosage: 600MG THREE TIMES PER DAY
     Route: 048
  2. FLOMAX [Concomitant]
     Dosage: .4MG PER DAY
     Route: 048
  3. CARBAMAZEPINE [Concomitant]
     Dosage: 100MG TWICE PER DAY
     Route: 048
  4. MORPHINE SULFATE [Concomitant]
     Dosage: 15MG SEE DOSAGE TEXT
  5. LOVASTATIN [Concomitant]
     Dosage: 80MG PER DAY
     Route: 048
  6. TEMAZEPAM [Concomitant]
     Dosage: 7.5MG SEE DOSAGE TEXT
     Route: 048
  7. COMPAZINE [Concomitant]
     Dosage: 10MG SEE DOSAGE TEXT
     Route: 048
  8. CYANOCOBALAMIN [Concomitant]
     Route: 048
  9. OXYCONTIN [Concomitant]
     Dosage: 20MG TWICE PER DAY
     Route: 048
  10. OFLOXACIN [Concomitant]
     Dosage: 4DROP TWICE PER DAY
     Route: 001
  11. HYDROXYZINE [Concomitant]
     Dosage: 25MG FOUR TIMES PER DAY
     Route: 048
  12. LORAZEPAM [Concomitant]
     Dosage: 1MG SEE DOSAGE TEXT
  13. ARZERRA [Suspect]
     Indication: CHRONIC LYMPHOCYTIC LEUKAEMIA
     Dosage: 2000MG WEEKLY
     Route: 042
     Dates: start: 20120411
  14. HUMALOG [Concomitant]
  15. ARZERRA [Suspect]
     Dosage: 300MG SINGLE DOSE
     Dates: start: 20120401
  16. FLEXERIL [Concomitant]
     Dosage: 10MG THREE TIMES PER DAY
     Route: 048
  17. VALTREX [Concomitant]
     Dosage: 1G TWICE PER DAY
     Route: 048
  18. AMBIEN [Concomitant]
     Dosage: 10MG SEE DOSAGE TEXT
     Route: 048
  19. ZOFRAN [Concomitant]
     Dosage: 8MG SEE DOSAGE TEXT
  20. OXYCODONE HCL [Concomitant]
     Dosage: 5MG SEE DOSAGE TEXT

REACTIONS (5)
  - EAR INFECTION [None]
  - MASTOIDITIS [None]
  - EAR PAIN [None]
  - HERPES VIRUS INFECTION [None]
  - SEPSIS [None]
